FAERS Safety Report 25375208 (Version 1)
Quarter: 2025Q2

REPORT INFORMATION
  Report Type: Spontaneous
  Country: SE (occurrence: SE)
  Receive Date: 20250529
  Receipt Date: 20250529
  Transmission Date: 20250716
  Serious: Yes (Hospitalization, Disabling)
  Sender: MYLAN
  Company Number: None

PATIENT
  Age: 21 Year
  Sex: Female

DRUGS (20)
  1. SERTRALINE [Suspect]
     Active Substance: SERTRALINE HYDROCHLORIDE
     Indication: Product used for unknown indication
     Dosage: 200 MILLIGRAM, QD (0+1)
     Dates: start: 2010, end: 2024
  2. SERTRALINE [Suspect]
     Active Substance: SERTRALINE HYDROCHLORIDE
     Dosage: 200 MILLIGRAM, QD (0+1)
     Route: 065
     Dates: start: 2010, end: 2024
  3. SERTRALINE [Suspect]
     Active Substance: SERTRALINE HYDROCHLORIDE
     Dosage: 200 MILLIGRAM, QD (0+1)
     Route: 065
     Dates: start: 2010, end: 2024
  4. SERTRALINE [Suspect]
     Active Substance: SERTRALINE HYDROCHLORIDE
     Dosage: 200 MILLIGRAM, QD (0+1)
     Dates: start: 2010, end: 2024
  5. OMEPRAZOLE [Concomitant]
     Active Substance: OMEPRAZOLE
  6. OMEPRAZOLE [Concomitant]
     Active Substance: OMEPRAZOLE
     Route: 065
  7. OMEPRAZOLE [Concomitant]
     Active Substance: OMEPRAZOLE
     Route: 065
  8. OMEPRAZOLE [Concomitant]
     Active Substance: OMEPRAZOLE
  9. DIENOGEST\ETHINYL ESTRADIOL [Concomitant]
     Active Substance: DIENOGEST\ETHINYL ESTRADIOL
  10. DIENOGEST\ETHINYL ESTRADIOL [Concomitant]
     Active Substance: DIENOGEST\ETHINYL ESTRADIOL
     Route: 065
  11. DIENOGEST\ETHINYL ESTRADIOL [Concomitant]
     Active Substance: DIENOGEST\ETHINYL ESTRADIOL
     Route: 065
  12. DIENOGEST\ETHINYL ESTRADIOL [Concomitant]
     Active Substance: DIENOGEST\ETHINYL ESTRADIOL
  13. PROMETHAZINE HYDROCHLORIDE\THIOUREA [Concomitant]
     Active Substance: PROMETHAZINE HYDROCHLORIDE\THIOUREA
  14. PROMETHAZINE HYDROCHLORIDE\THIOUREA [Concomitant]
     Active Substance: PROMETHAZINE HYDROCHLORIDE\THIOUREA
     Route: 065
  15. PROMETHAZINE HYDROCHLORIDE\THIOUREA [Concomitant]
     Active Substance: PROMETHAZINE HYDROCHLORIDE\THIOUREA
     Route: 065
  16. PROMETHAZINE HYDROCHLORIDE\THIOUREA [Concomitant]
     Active Substance: PROMETHAZINE HYDROCHLORIDE\THIOUREA
  17. MELATONIN [Concomitant]
     Active Substance: MELATONIN
  18. MELATONIN [Concomitant]
     Active Substance: MELATONIN
     Route: 065
  19. MELATONIN [Concomitant]
     Active Substance: MELATONIN
     Route: 065
  20. MELATONIN [Concomitant]
     Active Substance: MELATONIN

REACTIONS (3)
  - Muscular weakness [Not Recovered/Not Resolved]
  - Nausea [Not Recovered/Not Resolved]
  - Fatigue [Not Recovered/Not Resolved]

NARRATIVE: CASE EVENT DATE: 20110101
